FAERS Safety Report 23298391 (Version 2)
Quarter: 2024Q1

REPORT INFORMATION
  Report Type: Report from Study
  Country: FR (occurrence: FR)
  Receive Date: 20231214
  Receipt Date: 20240122
  Transmission Date: 20240410
  Serious: Yes (Other)
  Sender: FDA-Public Use
  Company Number: FR-GILEAD-2023-0655067

PATIENT
  Age: 62 Year
  Sex: Male

DRUGS (5)
  1. AXICABTAGENE CILOLEUCEL [Suspect]
     Active Substance: AXICABTAGENE CILOLEUCEL
     Indication: Product used for unknown indication
     Dosage: UNK
     Route: 065
  2. RITUXIMAB [Concomitant]
     Active Substance: RITUXIMAB
  3. IFOSFAMIDE [Concomitant]
     Active Substance: IFOSFAMIDE
  4. CARBOPLATIN [Concomitant]
     Active Substance: CARBOPLATIN
  5. ETOPOSIDE PHOSPHATE [Concomitant]
     Active Substance: ETOPOSIDE PHOSPHATE

REACTIONS (2)
  - Disease recurrence [Unknown]
  - Drug ineffective [Unknown]
